FAERS Safety Report 9778894 (Version 1)
Quarter: 2013Q4

REPORT INFORMATION
  Report Type: Spontaneous
  Country: US (occurrence: US)
  Receive Date: 20131223
  Receipt Date: 20131223
  Transmission Date: 20140711
  Serious: Yes (Hospitalization, Other)
  Sender: FDA-Public Use
  Company Number: US-PFIZER INC-2013362142

PATIENT
  Age: 45 Year
  Sex: Female

DRUGS (6)
  1. DILANTIN-125 [Suspect]
     Indication: EPILEPSY
     Dosage: UNK
  2. CINRYZE [Suspect]
     Indication: HEREDITARY ANGIOEDEMA
     Dosage: 1000 IU, 3 TIMES A WEEK
     Route: 042
     Dates: start: 2008
  3. CINRYZE [Suspect]
     Indication: PROPHYLAXIS
  4. COUMADIN [Suspect]
     Indication: PULMONARY EMBOLISM
     Dosage: UNK
     Dates: start: 2011
  5. COUMADIN [Suspect]
     Indication: EMBOLISM
  6. DANAZOL [Interacting]
     Indication: HEREDITARY ANGIOEDEMA
     Dosage: UNK

REACTIONS (10)
  - Inappropriate schedule of drug administration [Unknown]
  - Drug interaction [Unknown]
  - International normalised ratio increased [Recovered/Resolved]
  - Nephrolithiasis [Unknown]
  - Vomiting [Unknown]
  - Flank pain [Unknown]
  - Lip injury [Recovered/Resolved]
  - Lip haemorrhage [Recovered/Resolved]
  - Pulmonary embolism [Unknown]
  - Embolism [Unknown]
